FAERS Safety Report 5444570-3 (Version None)
Quarter: 2007Q3

REPORT INFORMATION
  Report Type: 
  Country: None (occurrence: None)
  Receive Date: 20070906
  Receipt Date: 20070831
  Transmission Date: 20080115
  Serious: Yes (Hospitalization)
  Sender: FDA-Public Use
  Company Number: IT-ASTRAZENECA-2007SE04701

PATIENT
  Age: 36 Year
  Sex: Male

DRUGS (3)
  1. MERREM [Suspect]
     Indication: SEPSIS
     Route: 042
     Dates: start: 20070423, end: 20070428
  2. VANCOMYCIN [Suspect]
     Indication: BACTERIAL SEPSIS
     Route: 042
     Dates: start: 20070427, end: 20070428
  3. GENTAMICINA [Suspect]
     Indication: SEPSIS
     Route: 042
     Dates: start: 20070423, end: 20070428

REACTIONS (1)
  - SKIN LESION [None]
